FAERS Safety Report 7777020-2 (Version None)
Quarter: 2011Q3

REPORT INFORMATION
  Report Type: 
  Country: None (occurrence: None)
  Receive Date: 20110923
  Receipt Date: 20110923
  Transmission Date: 20111222
  Serious: Yes (Other)
  Sender: FDA-Public Use
  Company Number: None

PATIENT
  Sex: Male
  Weight: 78.4723 kg

DRUGS (5)
  1. ALOXI [Concomitant]
  2. DECADRON [Concomitant]
  3. TAXOTERE [Concomitant]
  4. CARBOPLATIN [Suspect]
     Indication: NON-SMALL CELL LUNG CANCER
     Dosage: CARBOPLATIN Q2 WEEKS 360 MG IV
     Route: 042
     Dates: start: 20110511, end: 20110916
  5. BENADRYL [Concomitant]

REACTIONS (3)
  - NAUSEA [None]
  - DYSPNOEA [None]
  - COUGH [None]
